FAERS Safety Report 17417584 (Version 1)
Quarter: 2020Q1

REPORT INFORMATION
  Report Type: Spontaneous
  Country: US (occurrence: US)
  Receive Date: 20200214
  Receipt Date: 20200214
  Transmission Date: 20200409
  Serious: No
  Sender: FDA-Public Use
  Company Number: None

PATIENT
  Age: 65 Year
  Sex: Male
  Weight: 87.75 kg

DRUGS (4)
  1. COQ10 [Concomitant]
     Active Substance: UBIDECARENONE
  2. BABY ASPIRIN [Concomitant]
     Active Substance: ASPIRIN
  3. TADALAFIL 20MG GENERIC FOR CIALIS [Suspect]
     Active Substance: TADALAFIL
     Indication: ERECTILE DYSFUNCTION
     Dosage: ?          QUANTITY:8 TABLET(S);?
     Route: 048
     Dates: start: 20200203, end: 20200207
  4. PRAVASTATIN. [Concomitant]
     Active Substance: PRAVASTATIN

REACTIONS (1)
  - Dyspepsia [None]

NARRATIVE: CASE EVENT DATE: 20200203
